FAERS Safety Report 13001765 (Version 5)
Quarter: 2017Q3

REPORT INFORMATION
  Report Type: Report from Study
  Country: CA (occurrence: CA)
  Receive Date: 20161206
  Receipt Date: 20170719
  Transmission Date: 20171127
  Serious: Yes (Other)
  Sender: FDA-Public Use
  Company Number: CA-BIOGEN-2012BI056627

PATIENT
  Age: 32 Year
  Sex: Female

DRUGS (2)
  1. TYSABRI [Suspect]
     Active Substance: NATALIZUMAB
     Route: 065
     Dates: start: 2011
  2. TYSABRI [Suspect]
     Active Substance: NATALIZUMAB
     Indication: MULTIPLE SCLEROSIS
     Route: 042
     Dates: start: 20091102

REACTIONS (2)
  - Basal cell carcinoma [Not Recovered/Not Resolved]
  - Cervix carcinoma [Not Recovered/Not Resolved]

NARRATIVE: CASE EVENT DATE: 20121101
